FAERS Safety Report 5761458-9 (Version None)
Quarter: 2008Q2

REPORT INFORMATION
  Report Type: 
  Country: None (occurrence: None)
  Receive Date: 20080606
  Receipt Date: 20080530
  Transmission Date: 20081010
  Serious: Yes (Hospitalization)
  Sender: FDA-Public Use
  Company Number: DE-ABBOTT-08P-062-0452652-00

PATIENT
  Sex: Female
  Weight: 58 kg

DRUGS (3)
  1. HUMIRA [Suspect]
     Indication: CROHN'S DISEASE
     Route: 058
     Dates: start: 20051001, end: 20080129
  2. HUMIRA [Suspect]
     Route: 058
     Dates: start: 20050927, end: 20050927
  3. PREDNISONE TAB [Concomitant]
     Indication: CROHN'S DISEASE
     Dosage: 5-50 MG
     Route: 048
     Dates: start: 20080129

REACTIONS (1)
  - INGUINAL HERNIA [None]
